FAERS Safety Report 5031408-1 (Version None)
Quarter: 2006Q2

REPORT INFORMATION
  Report Type: 
  Country: None (occurrence: None)
  Receive Date: 20060616
  Receipt Date: 20060601
  Transmission Date: 20061013
  Serious: No
  Sender: FDA-Public Use
  Company Number: JP200604004599

PATIENT
  Age: 44 Year
  Sex: Female
  Weight: 50.5 kg

DRUGS (8)
  1. GEMZAR [Suspect]
     Indication: OVARIAN CANCER
     Dosage: 1400 MG, OTHER, INTRAVENOUS
     Route: 042
     Dates: start: 20060405
  2. PARAPLATIN [Concomitant]
  3. PREMARIN TABLET (ESTROGENS CONJUGATED) TABLET [Concomitant]
  4. MAGLAX (MAGNESIUM OXIDE) TABLET [Concomitant]
  5. HORIZON (DIAZEPAM) TABLET [Concomitant]
  6. RHYTHMY (RILMAZAFONE) TABLET [Concomitant]
  7. GASTER D (FAMOTIDINE) TABLET [Concomitant]
  8. RINDERON (BETAMETHASONE ) TABLET [Concomitant]

REACTIONS (7)
  - HALLUCINATION, VISUAL [None]
  - HYSTERECTOMY [None]
  - LYMPHADENECTOMY [None]
  - METASTASES TO CENTRAL NERVOUS SYSTEM [None]
  - OMENTECTOMY [None]
  - OOPHORECTOMY [None]
  - VISUAL ACUITY REDUCED [None]
